FAERS Safety Report 5927200-3 (Version None)
Quarter: 2008Q4

REPORT INFORMATION
  Report Type: 
  Country: None (occurrence: None)
  Receive Date: 20081022
  Receipt Date: 20081013
  Transmission Date: 20090506
  Serious: Yes (Other)
  Sender: FDA-Public Use
  Company Number: GB-PFIZER INC-2008078027

PATIENT
  Sex: Female

DRUGS (4)
  1. LIPITOR [Suspect]
     Indication: BLOOD CHOLESTEROL INCREASED
     Route: 048
     Dates: start: 20080816, end: 20080828
  2. RAMIPRIL [Concomitant]
  3. DICLOFENAC [Concomitant]
  4. LEKOVIT CA [Concomitant]

REACTIONS (2)
  - CONTUSION [None]
  - MYALGIA [None]
